FAERS Safety Report 10185989 (Version 1)
Quarter: 2014Q2

REPORT INFORMATION
  Report Type: Spontaneous
  Country: FR (occurrence: FR)
  Receive Date: 20140521
  Receipt Date: 20140521
  Transmission Date: 20141212
  Serious: Yes (Hospitalization)
  Sender: FDA-Public Use
  Company Number: FR-PFIZER INC-2014132840

PATIENT
  Age: 22 Month
  Sex: Male
  Weight: 13 kg

DRUGS (1)
  1. ADVILMED ENFANTS ET NOURRISSONS [Suspect]
     Indication: VARICELLA
     Dosage: 1 DF, 4X/DAY
     Route: 048
     Dates: start: 20140206, end: 20140207

REACTIONS (2)
  - Condition aggravated [Recovered/Resolved]
  - Vomiting [Recovered/Resolved]
